FAERS Safety Report 5283145-6 (Version None)
Quarter: 2007Q1

REPORT INFORMATION
  Report Type: 
  Country: None (occurrence: None)
  Receive Date: 20070327
  Receipt Date: 20070312
  Transmission Date: 20070707
  Serious: Yes (Hospitalization)
  Sender: FDA-Public Use
  Company Number: ST-2007-009574

PATIENT
  Age: 72 Year
  Sex: Female
  Weight: 49 kg

DRUGS (15)
  1. OLMETEC [Suspect]
     Indication: ESSENTIAL HYPERTENSION
     Dosage: 20 MG QD PO
     Route: 048
     Dates: start: 20050905
  2. LUVOX [Suspect]
     Dosage: 25 MG QD PO
     Route: 048
     Dates: start: 20050927, end: 20051128
  3. CARDENALIN [Suspect]
     Dosage: 2 MG QD PO
     Route: 048
     Dates: start: 20051118, end: 20060203
  4. SINLESTAL [Suspect]
     Dosage: 1 DF BID PO
     Route: 048
     Dates: end: 20051127
  5. DIOVAN [Concomitant]
  6. MAINTATE [Concomitant]
  7. ATELEC [Concomitant]
  8. GLYBURIDE [Concomitant]
  9. DIBETOS B [Concomitant]
  10. TAKEPRON [Concomitant]
  11. GASTER [Concomitant]
  12. NORVASC [Concomitant]
  13. FLUITRAN [Concomitant]
  14. SOLANAX [Concomitant]
  15. MAGMITT [Concomitant]

REACTIONS (4)
  - BLOOD GLUCOSE ABNORMAL [None]
  - DIZZINESS [None]
  - FALL [None]
  - ORTHOSTATIC HYPOTENSION [None]
